FAERS Safety Report 13689668 (Version 4)
Quarter: 2017Q3

REPORT INFORMATION
  Report Type: Spontaneous
  Country: JP (occurrence: JP)
  Receive Date: 20170626
  Receipt Date: 20170825
  Transmission Date: 20171127
  Serious: Yes (Disabling, Other)
  Sender: FDA-Public Use
  Company Number: JP-PFIZER INC-2017272144

PATIENT
  Age: 51 Year
  Sex: Male
  Weight: 92 kg

DRUGS (16)
  1. VESICARE [Interacting]
     Active Substance: SOLIFENACIN SUCCINATE
     Dosage: 5 MG, DAILY
     Route: 048
  2. AMLODIPINE [Concomitant]
     Active Substance: AMLODIPINE BESYLATE
     Dosage: 5 MG, DAILY
     Route: 048
  3. VOGLIBOSE [Concomitant]
     Active Substance: VOGLIBOSE
     Dosage: 0.3 MG, 3X/DAY
     Route: 048
  4. LYRICA [Suspect]
     Active Substance: PREGABALIN
     Dosage: 75 MG, 3X/DAY
     Route: 048
     Dates: start: 2014
  5. TRAMAL [Interacting]
     Active Substance: TRAMADOL
     Dosage: UNK
     Route: 048
     Dates: start: 2014, end: 2014
  6. LISINOPRIL + HIDROCLOROTIAZIDA [Concomitant]
     Active Substance: HYDROCHLOROTHIAZIDE\LISINOPRIL
     Dosage: 10 MG, DAILY
     Route: 048
  7. SEIBULE [Concomitant]
     Active Substance: MIGLITOL
     Dosage: 5 MG, 3X/DAY
     Route: 048
  8. STROCAIN /00130301/ [Concomitant]
  9. GLIMEPIRIDE. [Concomitant]
     Active Substance: GLIMEPIRIDE
     Dosage: 3 MG, 2X/DAY
     Route: 048
  10. TRAZENTA [Concomitant]
     Active Substance: LINAGLIPTIN
     Dosage: 5 MG, 1X/DAY
     Route: 048
  11. VANARL E [Concomitant]
  12. METGLUCO [Concomitant]
     Active Substance: METFORMIN HYDROCHLORIDE
     Dosage: 250 MG, 4X/DAY
     Route: 048
  13. MECOBALAMIN [Concomitant]
     Active Substance: METHYLCOBALAMIN
     Route: 048
  14. ARTIST [Concomitant]
     Active Substance: CARVEDILOL
     Dosage: 5 MG, 2X/DAY
     Route: 048
  15. ATORVASTATIN [Concomitant]
     Active Substance: ATORVASTATIN
     Dosage: 10 MG, DAILY
     Route: 048
  16. PRAZAXA [Concomitant]
     Active Substance: DABIGATRAN ETEXILATE MESYLATE
     Dosage: 150 MG, 2X/DAY
     Route: 048

REACTIONS (5)
  - Dyslalia [Recovered/Resolved]
  - Thinking abnormal [Recovered/Resolved]
  - Liver disorder [Recovered/Resolved]
  - Drug interaction [Recovering/Resolving]
  - Dementia [Recovered/Resolved]

NARRATIVE: CASE EVENT DATE: 2014
